FAERS Safety Report 7265903-1 (Version None)
Quarter: 2011Q1

REPORT INFORMATION
  Report Type: 
  Country: None (occurrence: None)
  Receive Date: 20110131
  Receipt Date: 20110124
  Transmission Date: 20110831
  Serious: Yes (Death)
  Sender: FDA-Public Use
  Company Number: B0696192A

PATIENT
  Sex: Male
  Weight: 59 kg

DRUGS (32)
  1. ALKERAN [Suspect]
     Indication: CORD BLOOD TRANSPLANT THERAPY
     Dosage: 80MGM2 PER DAY
     Route: 042
     Dates: start: 20100828, end: 20100828
  2. DIAZEPAM [Concomitant]
     Dosage: 20MG PER DAY
     Dates: start: 20100829, end: 20100829
  3. FLUDARA [Suspect]
     Indication: CORD BLOOD TRANSPLANT THERAPY
     Dosage: 25MGM2 PER DAY
     Route: 042
     Dates: start: 20100823, end: 20100827
  4. THROMBIN LOCAL SOLUTION [Concomitant]
     Dosage: 10IU3 PER DAY
     Route: 048
     Dates: start: 20100831, end: 20100831
  5. FLURBIPROFEN [Concomitant]
     Dosage: 15ML PER DAY
     Route: 042
     Dates: start: 20100823, end: 20100901
  6. GRANISETRON HCL [Concomitant]
     Dosage: 100ML PER DAY
     Route: 042
     Dates: start: 20100823, end: 20100828
  7. REMINARON [Concomitant]
     Dosage: 600MG PER DAY
     Route: 042
     Dates: start: 20100823, end: 20100828
  8. POTASSIUM CHLORIDE [Concomitant]
     Dosage: 20ML PER DAY
     Route: 042
     Dates: start: 20100901, end: 20100901
  9. BETAMETASONE [Concomitant]
     Dosage: .2IUAX PER DAY
     Dates: start: 20100901, end: 20100901
  10. MEYLON [Concomitant]
     Dosage: 80ML PER DAY
     Route: 042
     Dates: start: 20100827, end: 20100831
  11. ZOSYN [Concomitant]
     Dosage: 13.5G PER DAY
     Route: 042
     Dates: start: 20100827, end: 20100901
  12. ATARAX [Concomitant]
     Dosage: 1ML PER DAY
     Dates: start: 20100901, end: 20100901
  13. HUMULIN R [Concomitant]
     Dosage: 20ML PER DAY
     Dates: start: 20100828, end: 20100901
  14. SODIUM CHLORIDE [Concomitant]
     Dosage: 20ML PER DAY
     Route: 042
     Dates: start: 20100823, end: 20100901
  15. MIRACLID [Concomitant]
     Dosage: 2ML PER DAY
     Route: 042
     Dates: start: 20100824, end: 20100901
  16. SOL-MELCORT [Concomitant]
     Dosage: 125MG PER DAY
     Route: 042
     Dates: start: 20100829, end: 20100831
  17. SERENACE [Concomitant]
     Dosage: 12.5MG PER DAY
     Dates: start: 20100901, end: 20100901
  18. FUNGUARD [Concomitant]
     Dosage: 150MG PER DAY
     Route: 042
     Dates: start: 20100823, end: 20100901
  19. NEO-MINOPHAGEN-C [Concomitant]
     Dosage: 60ML PER DAY
     Route: 042
     Dates: start: 20100823, end: 20100901
  20. SOLU-CORTEF [Concomitant]
     Dosage: 200G PER DAY
     Route: 042
     Dates: start: 20100827, end: 20100901
  21. ADONA (AC-17) [Concomitant]
     Dosage: 20ML PER DAY
     Dates: start: 20100828, end: 20100828
  22. RECOMODULIN [Concomitant]
     Dosage: 1.5IUAX PER DAY
     Route: 042
     Dates: start: 20100831, end: 20100901
  23. HAPTOGLOBIN [Concomitant]
     Dosage: 1IUAX PER DAY
     Route: 042
     Dates: start: 20100901, end: 20100901
  24. TACROLIMUS [Concomitant]
     Indication: IMMUNOSUPPRESSION
     Dosage: 1.5MG PER DAY
     Route: 065
     Dates: start: 20100831, end: 20100901
  25. UNKNOWN MEDICATION [Concomitant]
     Dosage: 2ML PER DAY
     Route: 042
     Dates: start: 20100823, end: 20100901
  26. ADELAVIN [Concomitant]
     Dosage: 2ML PER DAY
     Dates: start: 20100823, end: 20100901
  27. POLARAMINE [Concomitant]
     Dosage: 1IUAX PER DAY
     Dates: start: 20100829, end: 20100831
  28. MORPHINE HYDROCHLORIDE [Concomitant]
     Dosage: 15ML PER DAY
     Dates: start: 20100901, end: 20100901
  29. THYMOGLOBULIN [Suspect]
     Indication: CORD BLOOD TRANSPLANT THERAPY
     Dosage: 1MGK PER DAY
     Route: 042
     Dates: start: 20100829, end: 20100831
  30. ACIROVEC [Concomitant]
     Dosage: 750MG PER DAY
     Route: 042
     Dates: start: 20100823, end: 20100901
  31. SOLCOSERYL [Concomitant]
     Dosage: 4ML PER DAY
     Dates: start: 20100823, end: 20100901
  32. DORMICUM [Concomitant]
     Dosage: 2ML PER DAY
     Dates: start: 20100901, end: 20100901

REACTIONS (6)
  - PROTEIN TOTAL DECREASED [None]
  - BLOOD ALBUMIN DECREASED [None]
  - HEPATIC FAILURE [None]
  - CARDIAC FAILURE [None]
  - C-REACTIVE PROTEIN INCREASED [None]
  - SEPSIS [None]
